FAERS Safety Report 9966053 (Version 1)
Quarter: 2014Q1

REPORT INFORMATION
  Report Type: Report from Study
  Country: US (occurrence: US)
  Receive Date: 20140305
  Receipt Date: 20140305
  Transmission Date: 20141002
  Serious: No
  Sender: FDA-Public Use
  Company Number: US-ABBVIE-13P-163-1122167-00

PATIENT
  Sex: Female

DRUGS (8)
  1. HUMIRA [Suspect]
     Indication: PSORIASIS
     Dates: start: 201110
  2. HUMIRA [Suspect]
     Indication: PSORIATIC ARTHROPATHY
  3. TRAZODONE [Concomitant]
     Indication: MAJOR DEPRESSION
  4. PROZAC [Concomitant]
     Indication: DEPRESSION
  5. TOPAMAX [Concomitant]
     Indication: AFFECTIVE DISORDER
  6. TOPAMAX [Concomitant]
     Indication: DEPRESSION
  7. SEROQUEL [Concomitant]
     Indication: DEPRESSION
  8. LEVOTHYROXINE [Concomitant]
     Indication: HYPOTHYROIDISM

REACTIONS (6)
  - Injection site nodule [Recovered/Resolved]
  - Injection site haemorrhage [Recovered/Resolved]
  - Fall [Unknown]
  - Facial bones fracture [Unknown]
  - Device malfunction [Unknown]
  - Incorrect dose administered [Unknown]
